FAERS Safety Report 8799448 (Version 1)
Quarter: 2012Q4

REPORT INFORMATION
  Report Type: 
  Country: BR (occurrence: BR)
  Receive Date: 20120919
  Receipt Date: 20120919
  Transmission Date: 20130627
  Serious: Yes (Other)
  Sender: FDA-Public Use
  Company Number: PHHY2012BR080539

PATIENT
  Age: 37 Year
  Sex: Female

DRUGS (7)
  1. BUDESONIDE, FORMOTEROL FUMARATE [Suspect]
     Dosage: 1 DF, BID
     Dates: start: 2002
  2. BUDESONIDE [Concomitant]
     Dosage: 64 ug, UNK
     Route: 045
     Dates: start: 2002
  3. OMEPRAZOLE [Concomitant]
     Dosage: 40 mg, QD
     Dates: start: 2002
  4. FLUTICASONE FUROATE [Concomitant]
     Dosage: 27.5 ug, BID
  5. OS-CAL [Concomitant]
     Dosage: UNK UKN, UNK
  6. LANSOPRAZOLE [Concomitant]
     Dosage: 30 mg, QD
  7. PURAN T4 [Concomitant]
     Dosage: 150 mg, UNK

REACTIONS (6)
  - Lung disorder [Recovered/Resolved]
  - Asthma [Recovering/Resolving]
  - Nasal polyps [Recovering/Resolving]
  - Gastrooesophageal reflux disease [Recovering/Resolving]
  - Sinusitis [Recovering/Resolving]
  - Skin test positive [None]
